FAERS Safety Report 9848889 (Version 1)
Quarter: 2014Q1

REPORT INFORMATION
  Report Type: Spontaneous
  Country: US (occurrence: None)
  Receive Date: 20140124
  Receipt Date: 20140124
  Transmission Date: 20141002
  Serious: Yes (Other)
  Sender: FDA-Public Use
  Company Number: None

PATIENT
  Age: 56 Year
  Sex: Male

DRUGS (1)
  1. DULOXETINE [Suspect]
     Dosage: 2 QHS/BEDTIME
     Route: 048

REACTIONS (4)
  - Nausea [None]
  - Vomiting [None]
  - Rash [None]
  - Product substitution issue [None]
